FAERS Safety Report 5527635-7 (Version None)
Quarter: 2007Q4

REPORT INFORMATION
  Report Type: 
  Country: None (occurrence: None)
  Receive Date: 20071128
  Receipt Date: 20071126
  Transmission Date: 20080405
  Serious: Yes (Other)
  Sender: FDA-Public Use
  Company Number: US-WYE-H00890007

PATIENT
  Sex: Male

DRUGS (3)
  1. TYGACIL [Suspect]
     Indication: ABDOMINAL INFECTION
     Dosage: 100 MG LOADING DOSE, THEN 50 MG Q 12 H
     Route: 042
  2. ZOFRAN [Concomitant]
     Indication: PROPHYLAXIS OF NAUSEA AND VOMITING
     Dosage: 4 MG DOSE AROUND THE CLOCK (INTERVAL NOT SPECIFIED)
     Route: 042
  3. PHENERGAN HCL [Concomitant]
     Indication: PROPHYLAXIS OF NAUSEA AND VOMITING
     Dosage: 12.5 MG AND 25 MG DOSES AROUND THE CLOCK (INTERVAL NOT SPECIFIED)
     Route: 042

REACTIONS (1)
  - NAUSEA [None]
